FAERS Safety Report 7749043-0 (Version None)
Quarter: 2011Q3

REPORT INFORMATION
  Report Type: 
  Country: None (occurrence: None)
  Receive Date: 20110914
  Receipt Date: 20110905
  Transmission Date: 20111222
  Serious: Yes (Life-Threatening, Other)
  Sender: FDA-Public Use
  Company Number: JP-JNJFOC-20101101867

PATIENT
  Sex: Female
  Weight: 53 kg

DRUGS (12)
  1. DOXORUBICIN HCL [Suspect]
     Indication: OVARIAN CANCER RECURRENT
     Route: 042
     Dates: start: 20100611, end: 20100611
  2. DOXORUBICIN HCL [Suspect]
     Route: 042
     Dates: start: 20100806, end: 20100806
  3. DOXORUBICIN HCL [Suspect]
     Route: 042
     Dates: start: 20100709, end: 20100709
  4. DOXORUBICIN HCL [Suspect]
     Route: 042
     Dates: start: 20101001, end: 20101001
  5. VITANEURIN [Concomitant]
     Indication: PROPHYLAXIS
     Route: 048
     Dates: start: 20100610, end: 20101029
  6. JUZEN-TAIHO-TO [Concomitant]
     Indication: BONE MARROW FAILURE
     Route: 048
     Dates: start: 20100610, end: 20101029
  7. JUZEN-TAIHO-TO [Concomitant]
     Indication: PROPHYLAXIS
     Route: 048
     Dates: start: 20100610, end: 20101029
  8. MUCOSTA [Concomitant]
     Indication: PROPHYLAXIS
     Route: 048
     Dates: start: 20100610, end: 20101029
  9. PROCHLORPERAZINE [Concomitant]
     Indication: ANTIEMETIC SUPPORTIVE CARE
     Route: 048
     Dates: start: 20101006, end: 20101012
  10. PROTECADIN [Concomitant]
     Indication: PROPHYLAXIS
     Route: 048
     Dates: start: 20100129, end: 20101029
  11. DOXORUBICIN HCL [Suspect]
     Route: 042
     Dates: start: 20100903, end: 20100903
  12. HANGE-SHASHIN-TO (CHINESE HERBAL MEDICINE) [Concomitant]
     Indication: PROPHYLAXIS
     Route: 048
     Dates: start: 20100610, end: 20101029

REACTIONS (2)
  - LIVER ABSCESS [None]
  - INTERSTITIAL LUNG DISEASE [None]
